FAERS Safety Report 4551249-9 (Version None)
Quarter: 2005Q1

REPORT INFORMATION
  Report Type: 
  Country: None (occurrence: None)
  Receive Date: 20050106
  Receipt Date: 20041220
  Transmission Date: 20050727
  Serious: Yes (Hospitalization)
  Sender: FDA-Public Use
  Company Number: CA_041207567

PATIENT
  Age: 87 Year
  Sex: Female

DRUGS (4)
  1. FORTEO [Suspect]
     Indication: OSTEOPOROSIS
     Dosage: 20 UG/1 DAY
     Dates: start: 20041102, end: 20041216
  2. COLACE (DOCUSATE SODIUM) [Concomitant]
  3. SENNA FRUIT [Concomitant]
  4. CHLORPOMAZINE [Concomitant]

REACTIONS (3)
  - BACK PAIN [None]
  - DEPRESSED LEVEL OF CONSCIOUSNESS [None]
  - GASTROINTESTINAL HAEMORRHAGE [None]
